FAERS Safety Report 23464989 (Version 1)
Quarter: 2024Q1

REPORT INFORMATION
  Report Type: Spontaneous
  Country: US (occurrence: US)
  Receive Date: 20240201
  Receipt Date: 20240201
  Transmission Date: 20240409
  Serious: No
  Sender: FDA-Public Use
  Company Number: US-GLENMARK PHARMACEUTICALS-2023GMK086341

PATIENT

DRUGS (1)
  1. RYALTRIS [Suspect]
     Active Substance: MOMETASONE FUROATE MONOHYDRATE\OLOPATADINE HYDROCHLORIDE
     Indication: Nasal congestion
     Dosage: 2 DOSAGE FORM, BID  (IN EACH NOSTRIL, TWICE DAILY (MORNING AND EVENING))
     Route: 045

REACTIONS (3)
  - Product use in unapproved indication [Unknown]
  - Drug dose omission by device [Unknown]
  - Drug delivery system issue [Unknown]
